FAERS Safety Report 22217855 (Version 4)
Quarter: 2023Q2

REPORT INFORMATION
  Report Type: Spontaneous
  Country: FR (occurrence: FR)
  Receive Date: 20230417
  Receipt Date: 20230627
  Transmission Date: 20230721
  Serious: Yes (Other)
  Sender: FDA-Public Use
  Company Number: FR-JNJFOC-20230415761

PATIENT
  Age: 57 Year
  Sex: Female
  Weight: 75 kg

DRUGS (3)
  1. TECVAYLI [Suspect]
     Active Substance: TECLISTAMAB-CQYV
     Indication: Plasma cell myeloma
     Dosage: INITIAL PEAK 80 G/I AT THE BEGINNING OF APRIL
     Route: 065
  2. TECVAYLI [Suspect]
     Active Substance: TECLISTAMAB-CQYV
     Dosage: AFTER SINGLE COMPLETE DOSE PEAK 9 G/I
     Route: 065
  3. TECVAYLI [Suspect]
     Active Substance: TECLISTAMAB-CQYV
     Route: 065
     Dates: start: 20230228

REACTIONS (5)
  - Pulmonary embolism [Unknown]
  - Pneumothorax [Unknown]
  - Thrombosis [Unknown]
  - Post-acute COVID-19 syndrome [Unknown]
  - Parainfluenzae virus infection [Unknown]
